FAERS Safety Report 23371857 (Version 1)
Quarter: 2024Q1

REPORT INFORMATION
  Report Type: Spontaneous
  Country: US (occurrence: None)
  Receive Date: 20240105
  Receipt Date: 20240105
  Transmission Date: 20240410
  Serious: Yes (Other)
  Sender: FDA-Public Use
  Company Number: None

PATIENT
  Age: 76 Year
  Sex: Female
  Weight: 61.23 kg

DRUGS (5)
  1. PROLIA [Suspect]
     Active Substance: DENOSUMAB
     Indication: Osteoporosis
     Dosage: OTHER FREQUENCY : EVERY6MONTHSSC;?
     Dates: start: 20141106
  2. VITAMIN D [Concomitant]
  3. MULTIVITAMIN [Concomitant]
  4. FLUOXETINE [Concomitant]
  5. DICYCLOMINE [Concomitant]

REACTIONS (7)
  - Injection site pain [None]
  - Chills [None]
  - Pyrexia [None]
  - Headache [None]
  - Middle insomnia [None]
  - Muscular weakness [None]
  - Pain in extremity [None]

NARRATIVE: CASE EVENT DATE: 20231218
